FAERS Safety Report 22541307 (Version 1)
Quarter: 2023Q2

REPORT INFORMATION
  Report Type: Spontaneous
  Country: GB (occurrence: GB)
  Receive Date: 20230609
  Receipt Date: 20230609
  Transmission Date: 20230722
  Serious: Yes (Hospitalization, Other)
  Sender: FDA-Public Use
  Company Number: None

PATIENT

DRUGS (6)
  1. PREDNISOLONE [Suspect]
     Active Substance: PREDNISOLONE
     Dosage: 90 MG, QD(IN THE MORNING)
     Route: 048
  2. CYCLOPHOSPHAMIDE [Suspect]
     Active Substance: CYCLOPHOSPHAMIDE
     Dosage: 1800 MG(1000MG/250ML),750MG/M2=1800MG (DOSE-BANDED)
     Route: 039
  3. DOXORUBICIN [Suspect]
     Active Substance: DOXORUBICIN
     Dosage: 110 MG(100MG/50ML),VIALS,50MGM2=110MG (DOSE-BANDED)
  4. POLATUZUMAB VEDOTIN [Suspect]
     Active Substance: POLATUZUMAB VEDOTIN
     Dosage: 220 MG(VIALS),1.8MG/KG=220MG (DOSE-BANDED)
     Route: 042
  5. RITUXIMAB [Suspect]
     Active Substance: RITUXIMAB
     Dosage: 900 MG(500MG/50ML),VIALS,375MG/M2=900MG (DOSE-BANDED)
     Route: 042
  6. SODIUM CHLORIDE [Suspect]
     Active Substance: SODIUM CHLORIDE
     Dosage: UNK(1000MG/250ML)

REACTIONS (2)
  - Pancytopenia [Unknown]
  - Sepsis [Unknown]
